FAERS Safety Report 11214596 (Version 3)
Quarter: 2015Q3

REPORT INFORMATION
  Report Type: Report from Study
  Country: US (occurrence: US)
  Receive Date: 20150624
  Receipt Date: 20150819
  Transmission Date: 20151125
  Serious: Yes (Other)
  Sender: FDA-Public Use
  Company Number: PHEH2015US011407

PATIENT
  Sex: Male
  Weight: 111.11 kg

DRUGS (2)
  1. VITAMIN D [Concomitant]
     Active Substance: CHOLECALCIFEROL
     Indication: VITAMIN D DEFICIENCY
     Dosage: UNK
     Route: 065
  2. GILENYA [Suspect]
     Active Substance: FINGOLIMOD HYDROCHLORIDE
     Indication: MULTIPLE SCLEROSIS
     Dosage: 0.5 MG, QD
     Route: 048
     Dates: start: 20150107

REACTIONS (4)
  - Musculoskeletal injury [Recovering/Resolving]
  - Muscle strain [Not Recovered/Not Resolved]
  - Muscle injury [Not Recovered/Not Resolved]
  - Nephrolithiasis [Not Recovered/Not Resolved]
